FAERS Safety Report 7788081-9 (Version None)
Quarter: 2011Q3

REPORT INFORMATION
  Report Type: 
  Country: None (occurrence: None)
  Receive Date: 20110927
  Receipt Date: 20110913
  Transmission Date: 20111222
  Serious: Yes (Life-Threatening, Hospitalization, Disabling, Other)
  Sender: FDA-Public Use
  Company Number: 2011MA013476

PATIENT
  Age: 36 Year
  Sex: Male

DRUGS (5)
  1. ATENOLOL [Suspect]
     Indication: OVERDOSE
     Dosage: 10 G; 1X;
  2. FLUOXETINE [Suspect]
     Indication: OVERDOSE
     Dosage: ;1X;
  3. SERTRALINE HYDROCHLORIDE [Suspect]
     Indication: OVERDOSE
     Dosage: ; 1X;
  4. NIFEDIPINE [Suspect]
     Indication: OVERDOSE
     Dosage: ; 1X;
  5. LACIDIPINE (LACIDIPINE) [Suspect]
     Indication: OVERDOSE
     Dosage: ;1X;

REACTIONS (23)
  - CARDIAC ARREST [None]
  - RHABDOMYOLYSIS [None]
  - GENERAL PHYSICAL HEALTH DETERIORATION [None]
  - SHOCK [None]
  - NERVOUS SYSTEM DISORDER [None]
  - MULTIPLE DRUG OVERDOSE INTENTIONAL [None]
  - DEPRESSED LEVEL OF CONSCIOUSNESS [None]
  - HYPOTENSION [None]
  - APHASIA [None]
  - TOXICITY TO VARIOUS AGENTS [None]
  - DYSPNOEA [None]
  - HYPOXIA [None]
  - CARDIAC FAILURE [None]
  - HAEMODYNAMIC INSTABILITY [None]
  - CONTINUOUS HAEMODIAFILTRATION [None]
  - ACTIVITIES OF DAILY LIVING IMPAIRED [None]
  - PULMONARY OEDEMA [None]
  - RENAL FAILURE [None]
  - ATAXIA [None]
  - METABOLIC ACIDOSIS [None]
  - MULTI-ORGAN FAILURE [None]
  - HYPOKALAEMIA [None]
  - SINUS BRADYCARDIA [None]
